FAERS Safety Report 7906740-1 (Version None)
Quarter: 2011Q4

REPORT INFORMATION
  Report Type: 
  Country: None (occurrence: None)
  Receive Date: 20111110
  Receipt Date: 20111101
  Transmission Date: 20120403
  Serious: Yes (Hospitalization, Other)
  Sender: FDA-Public Use
  Company Number: US-JNJFOC-20111101191

PATIENT
  Sex: Female
  Weight: 89.81 kg

DRUGS (6)
  1. TIZANIDINE HCL [Concomitant]
     Indication: PRODUCT USED FOR UNKNOWN INDICATION
     Route: 048
  2. LIMBREL [Concomitant]
     Indication: ARTHRITIS
     Route: 048
  3. LYRICA [Concomitant]
     Indication: FIBROMYALGIA
     Route: 048
  4. ONDANSETRON [Concomitant]
     Indication: DYSPEPSIA
     Route: 048
  5. AMITRIPTYLINE HCL [Concomitant]
     Indication: DEPRESSION
     Route: 048
  6. TOPAMAX [Suspect]
     Indication: MIGRAINE
     Route: 048
     Dates: start: 20100101

REACTIONS (7)
  - FALL [None]
  - TABLET PHYSICAL ISSUE [None]
  - GINGIVAL DISORDER [None]
  - MIGRAINE [None]
  - DIZZINESS [None]
  - INFECTION [None]
  - HYPERSENSITIVITY [None]
